FAERS Safety Report 8470477-3 (Version None)
Quarter: 2012Q2

REPORT INFORMATION
  Report Type: 
  Country: None (occurrence: None)
  Receive Date: 20120620
  Receipt Date: 20120608
  Transmission Date: 20120825
  Serious: Yes (Hospitalization)
  Sender: FDA-Public Use
  Company Number: AXC-2012-000266

PATIENT
  Age: 20 Year
  Sex: Female

DRUGS (2)
  1. DICYCLOMINE [Suspect]
     Indication: PRODUCT USED FOR UNKNOWN INDICATION
     Dosage: ORAL
     Route: 048
     Dates: start: 20120501, end: 20120601
  2. BENTYL [Suspect]
     Indication: PRODUCT USED FOR UNKNOWN INDICATION
     Dosage: 1 DF, SINGLE, INTRAVENOUS
     Route: 042
     Dates: start: 20120501, end: 20120501

REACTIONS (3)
  - THROMBOSIS [None]
  - INCORRECT ROUTE OF DRUG ADMINISTRATION [None]
  - GASTROINTESTINAL HAEMORRHAGE [None]
